FAERS Safety Report 24269380 (Version 1)
Quarter: 2024Q3

REPORT INFORMATION
  Report Type: Report from Study
  Country: US (occurrence: None)
  Receive Date: 20240830
  Receipt Date: 20240830
  Transmission Date: 20241017
  Serious: Yes (Other)
  Sender: ASTRAZENECA
  Company Number: 2024A194753

PATIENT
  Sex: Male

DRUGS (10)
  1. FASENRA [Suspect]
     Active Substance: BENRALIZUMAB
     Indication: Asthma
     Route: 058
     Dates: start: 20240822
  2. BREZTRI [Suspect]
     Active Substance: BUDESONIDE\FORMOTEROL\GLYCOPYRROLATE
     Dosage: 160-9-4
     Route: 055
  3. ACYCLOVIR [Concomitant]
     Active Substance: ACYCLOVIR
  4. BACLOFEN [Concomitant]
     Active Substance: BACLOFEN
  5. ALBUTEROL [Concomitant]
     Active Substance: ALBUTEROL
     Dosage: 108
  6. BRUKINSA [Concomitant]
     Active Substance: ZANUBRUTINIB
  7. BUPROPION [Concomitant]
     Active Substance: BUPROPION
  8. HYDROCODONE [Concomitant]
     Active Substance: HYDROCODONE
  9. MONTELUKAST [Concomitant]
     Active Substance: MONTELUKAST SODIUM
  10. SULFAMETHOXAZOLE [Concomitant]
     Active Substance: SULFAMETHOXAZOLE
     Dosage: 800-160 M

REACTIONS (8)
  - Poor quality sleep [Not Recovered/Not Resolved]
  - Middle insomnia [Not Recovered/Not Resolved]
  - Restless legs syndrome [Not Recovered/Not Resolved]
  - Dyspnoea [Not Recovered/Not Resolved]
  - Back pain [Not Recovered/Not Resolved]
  - Injury [Not Recovered/Not Resolved]
  - Irritability [Not Recovered/Not Resolved]
  - Depression [Not Recovered/Not Resolved]
